FAERS Safety Report 19061893 (Version 1)
Quarter: 2021Q1

REPORT INFORMATION
  Report Type: Spontaneous
  Country: US (occurrence: US)
  Receive Date: 20210326
  Receipt Date: 20210326
  Transmission Date: 20210420
  Serious: No
  Sender: FDA-Public Use
  Company Number: US-SA-2021SA101122

PATIENT
  Age: 14 Year
  Sex: Male

DRUGS (1)
  1. DUPIXENT [Suspect]
     Active Substance: DUPILUMAB
     Indication: DERMATITIS
     Route: 058
     Dates: start: 20191121

REACTIONS (5)
  - Dermatitis [Not Recovered/Not Resolved]
  - Product use in unapproved indication [Unknown]
  - Discomfort [Not Recovered/Not Resolved]
  - Rash [Not Recovered/Not Resolved]
  - Product use issue [Unknown]

NARRATIVE: CASE EVENT DATE: 20191121
